FAERS Safety Report 5841888-7 (Version None)
Quarter: 2008Q3

REPORT INFORMATION
  Report Type: 
  Country: None (occurrence: None)
  Receive Date: 20080731
  Receipt Date: 20080626
  Transmission Date: 20090109
  Serious: No
  Sender: FDA-Public Use
  Company Number: US200806006532

PATIENT
  Age: 56 Year
  Sex: Female

DRUGS (21)
  1. BYETTA [Suspect]
     Indication: TYPE 2 DIABETES MELLITUS
     Dosage: SEE IMAGE
     Route: 058
     Dates: start: 20060101, end: 20060101
  2. BYETTA [Suspect]
     Indication: TYPE 2 DIABETES MELLITUS
     Dosage: SEE IMAGE
     Route: 058
     Dates: start: 20060101, end: 20070101
  3. BYETTA [Suspect]
     Indication: TYPE 2 DIABETES MELLITUS
     Dosage: SEE IMAGE
     Route: 058
     Dates: start: 20070601, end: 20070101
  4. BYETTA [Suspect]
     Indication: TYPE 2 DIABETES MELLITUS
     Dosage: SEE IMAGE
     Route: 058
     Dates: start: 20070101, end: 20070601
  5. BYETTA [Suspect]
     Indication: TYPE 2 DIABETES MELLITUS
     Dosage: SEE IMAGE
     Route: 058
     Dates: start: 20070101, end: 20070601
  6. BYETTA [Suspect]
     Indication: TYPE 2 DIABETES MELLITUS
     Dosage: SEE IMAGE
     Route: 058
     Dates: start: 20070101
  7. BYETTA [Suspect]
     Indication: TYPE 2 DIABETES MELLITUS
     Dosage: SEE IMAGE
     Route: 058
     Dates: start: 20070601
  8. BYETTA [Suspect]
  9. ... [Concomitant]
  10. METFORMIN HCL [Concomitant]
  11. POTASSIUM (POTASSIUM) [Concomitant]
  12. AMITRIPTLINE HYDROCHLORIDE TAB [Concomitant]
  13. LIPITOR [Concomitant]
  14. CRESTOR [Concomitant]
  15. VITAMIN TAB [Concomitant]
  16. CALCIUM (CALCIUM) [Concomitant]
  17. COZAAR [Concomitant]
  18. HYDROCHLOROTHIAZIDE [Concomitant]
  19. NEXIUM [Concomitant]
  20. EVISTA [Concomitant]
  21. ASA (ASPIRIN (ACETYLSALICYLIC ACID) UNKNOWN FORMULATION) [Concomitant]

REACTIONS (5)
  - BLOOD GLUCOSE DECREASED [None]
  - GASTROINTESTINAL HAEMORRHAGE [None]
  - MUSCLE ENZYME INCREASED [None]
  - PAIN [None]
  - TREMOR [None]
